FAERS Safety Report 16519901 (Version 1)
Quarter: 2019Q3

REPORT INFORMATION
  Report Type: Spontaneous
  Country: US (occurrence: US)
  Receive Date: 20190702
  Receipt Date: 20190702
  Transmission Date: 20191004
  Serious: Yes (Other)
  Sender: FDA-Public Use
  Company Number: US-ASTRAZENECA-2019SE92883

PATIENT
  Age: 37 Year
  Sex: Female

DRUGS (27)
  1. LISINOPRIL. [Suspect]
     Active Substance: LISINOPRIL
     Route: 048
  2. VITAMIN D [Concomitant]
     Active Substance: VITAMIN D NOS
     Route: 048
  3. ALCOHOL SWABS PADS [Concomitant]
     Dosage: USE BEFORE INJECTING INSULIN AND CHECKING BLOOD SUGARS
  4. GLUCOSE INJECTION [Concomitant]
     Active Substance: DEXTROSE
     Dosage: TEST BLOOD SUGARS TWICE DAILY
  5. NORTRIPTYLINE [Concomitant]
     Active Substance: NORTRIPTYLINE
     Route: 048
  6. SEROQUEL [Suspect]
     Active Substance: QUETIAPINE FUMARATE
     Route: 048
  7. GLIPIZIDE. [Concomitant]
     Active Substance: GLIPIZIDE
     Dosage: 1 TAB BY MOUTH IN THE AM AND 2 TABS WITH DINNER
     Route: 048
  8. ABILIFY [Concomitant]
     Active Substance: ARIPIPRAZOLE
  9. HYDROCODONE-ACETAMINOPHEN [Concomitant]
     Active Substance: ACETAMINOPHEN\HYDROCODONE
     Route: 048
  10. GABAPENTIN. [Concomitant]
     Active Substance: GABAPENTIN
     Indication: NEURALGIA
     Dosage: TAKE 2 CAPSULES IN AM, 2 CAPSULES IN AFTERNOON, AND 2 CAPSULES IN PM
     Route: 048
  11. BYDUREON [Suspect]
     Active Substance: EXENATIDE
     Route: 065
  12. CLARITIN [Concomitant]
     Active Substance: LORATADINE
     Route: 048
  13. TOPAMAX [Concomitant]
     Active Substance: TOPIRAMATE
     Route: 048
  14. METFORMIN [Concomitant]
     Active Substance: METFORMIN HYDROCHLORIDE
     Route: 048
  15. COLACE [Concomitant]
     Active Substance: DOCUSATE SODIUM
     Route: 048
  16. SPIRONOLACTONE. [Concomitant]
     Active Substance: SPIRONOLACTONE
     Dosage: 1 TAB BY MOUTH EVERY MORNING FOR 2 WEEKS THEN 1 TAB TWICE DAILY
     Route: 048
  17. GEODON [Suspect]
     Active Substance: ZIPRASIDONE HYDROCHLORIDE\ZIPRASIDONE MESYLATE
     Indication: BIPOLAR DISORDER
     Route: 048
     Dates: start: 20160412, end: 20160418
  18. FUROSEMIDE. [Concomitant]
     Active Substance: FUROSEMIDE
     Dosage: 1.0DF AS REQUIRED
     Route: 048
  19. VITAMIN B12 [Concomitant]
     Active Substance: CYANOCOBALAMIN
     Route: 048
  20. LANTUS [Concomitant]
     Active Substance: INSULIN GLARGINE
     Dosage: INJECT 36 UNITS SUBCUTANEOUS EVERY NIGHT
     Route: 058
  21. FLURBIPROFEN. [Concomitant]
     Active Substance: FLURBIPROFEN
     Route: 048
  22. LORAZEPAM. [Concomitant]
     Active Substance: LORAZEPAM
     Dosage: 1-4 TABS UP TO 3 TIMES A DAY AS NEEDED
     Route: 048
  23. BACLOFEN. [Concomitant]
     Active Substance: BACLOFEN
     Dosage: 1 TAB THREE TIMES DAILY AS NEEDED
     Route: 048
  24. LAMICTAL [Concomitant]
     Active Substance: LAMOTRIGINE
     Route: 048
  25. PROPRANOLOL HYDROCHLORIDE. [Suspect]
     Active Substance: PROPRANOLOL HYDROCHLORIDE
     Route: 065
  26. OMEPRAZOLE. [Suspect]
     Active Substance: OMEPRAZOLE
     Route: 048
  27. VENTOLIN HFA [Concomitant]
     Active Substance: ALBUTEROL SULFATE
     Dosage: 2 PUFFS EVER--PROVIDED BY ER

REACTIONS (8)
  - Mood swings [Unknown]
  - Anaphylactic reaction [Unknown]
  - Cough [Unknown]
  - Dyspnoea [Recovered/Resolved]
  - Drug hypersensitivity [Unknown]
  - Paraesthesia [Unknown]
  - Oedema peripheral [Unknown]
  - Hypertonic bladder [Unknown]

NARRATIVE: CASE EVENT DATE: 20160419
